FAERS Safety Report 8355418-1 (Version None)
Quarter: 2012Q2

REPORT INFORMATION
  Report Type: 
  Country: None (occurrence: None)
  Receive Date: 20120511
  Receipt Date: 20120504
  Transmission Date: 20120825
  Serious: Yes (Hospitalization, Other)
  Sender: FDA-Public Use
  Company Number: US-ABBOTT-12P-163-0932848-00

PATIENT
  Sex: Female
  Weight: 77.18 kg

DRUGS (5)
  1. LEVOTHYROXINE SODIUM [Concomitant]
     Indication: HYPOTHYROIDISM
     Dosage: 150MCG /DAY
  2. INTERFERON [Suspect]
     Indication: HEPATITIS C
  3. LEXAPRO [Concomitant]
     Indication: PRODUCT USED FOR UNKNOWN INDICATION
  4. HUMIRA [Suspect]
  5. HUMIRA [Suspect]
     Indication: PSORIASIS
     Dates: end: 20091201

REACTIONS (8)
  - LOSS OF CONSCIOUSNESS [None]
  - BLOOD POTASSIUM DECREASED [None]
  - VOMITING [None]
  - WEIGHT DECREASED [None]
  - INCORRECT DOSE ADMINISTERED [None]
  - NAUSEA [None]
  - IMPAIRED REASONING [None]
  - LIVER FUNCTION TEST ABNORMAL [None]
